FAERS Safety Report 23494898 (Version 1)
Quarter: 2024Q1

REPORT INFORMATION
  Report Type: Spontaneous
  Country: US (occurrence: US)
  Receive Date: 20240207
  Receipt Date: 20240207
  Transmission Date: 20240410
  Serious: Yes (Hospitalization, Other)
  Sender: FDA-Public Use
  Company Number: US-FreseniusKabi-FK202402023

PATIENT
  Age: 66 Year
  Sex: Female

DRUGS (27)
  1. PHENYLEPHRINE [Suspect]
     Active Substance: PHENYLEPHRINE HYDROCHLORIDE
     Indication: Post procedural hypotension
     Dosage: FORM: INFUSION OVER 1HOUR AND 15 MINUTES FOR A TOTAL OF 850 ?G GIVEN
  2. PHENYLEPHRINE [Suspect]
     Active Substance: PHENYLEPHRINE HYDROCHLORIDE
     Dosage: DUE TO HER HYPOTENSION, AT 07:59 AM, SHE WAS STARTED ON A PHENYLEPHRINE INFUSION, 07:59 RECEIVED AN
  3. FENTANYL [Concomitant]
     Active Substance: FENTANYL\FENTANYL CITRATE
     Indication: Spinal fusion surgery
  4. FENTANYL [Concomitant]
     Active Substance: FENTANYL\FENTANYL CITRATE
     Indication: Spinal laminectomy
  5. LIDOCAINE [Concomitant]
     Active Substance: LIDOCAINE
     Indication: Spinal fusion surgery
  6. LIDOCAINE [Concomitant]
     Active Substance: LIDOCAINE
     Indication: Spinal laminectomy
  7. PROPOFOL [Concomitant]
     Active Substance: PROPOFOL
     Indication: Spinal fusion surgery
  8. PROPOFOL [Concomitant]
     Active Substance: PROPOFOL
     Indication: Spinal laminectomy
  9. ONDANSETRON [Concomitant]
     Active Substance: ONDANSETRON
     Indication: Spinal fusion surgery
  10. ONDANSETRON [Concomitant]
     Active Substance: ONDANSETRON
     Indication: Spinal laminectomy
  11. DEXAMETHASONE [Concomitant]
     Active Substance: DEXAMETHASONE
     Indication: Spinal fusion surgery
  12. DEXAMETHASONE [Concomitant]
     Active Substance: DEXAMETHASONE
     Indication: Spinal laminectomy
  13. VECURONIUM [Concomitant]
     Active Substance: VECURONIUM BROMIDE
     Indication: Spinal fusion surgery
  14. VECURONIUM [Concomitant]
     Active Substance: VECURONIUM BROMIDE
     Indication: Spinal laminectomy
  15. KETOROLAC [Concomitant]
     Active Substance: KETOROLAC TROMETHAMINE
     Indication: Spinal fusion surgery
     Dosage: TIMING: 05:46 RECEIVED DOSES OF THIS IN PRECEDING 24 HOURS; CONTINUED TO RECEIVE DOSES OF THIS IN TH
  16. KETOROLAC [Concomitant]
     Active Substance: KETOROLAC TROMETHAMINE
     Indication: Spinal laminectomy
  17. KETOROLAC [Concomitant]
     Active Substance: KETOROLAC TROMETHAMINE
     Indication: Pain
  18. HYDROMORPHONE [Concomitant]
     Active Substance: HYDROMORPHONE
     Indication: Spinal fusion surgery
  19. HYDROMORPHONE [Concomitant]
     Active Substance: HYDROMORPHONE
     Indication: Spinal laminectomy
  20. ACETAMINOPHEN [Concomitant]
     Active Substance: ACETAMINOPHEN
     Indication: Spinal fusion surgery
     Dosage: ROA: INTRAVENOUS ?TIMING: 05:45 RECEIVED TWO DOSES OF ACETAMINOPHEN IN PRECEDING 24 HOURS; RECEIVED
  21. ACETAMINOPHEN [Concomitant]
     Active Substance: ACETAMINOPHEN
     Indication: Spinal laminectomy
  22. VANCOMYCIN [Concomitant]
     Active Substance: VANCOMYCIN
     Indication: Spinal fusion surgery
  23. VANCOMYCIN [Concomitant]
     Active Substance: VANCOMYCIN
     Indication: Spinal laminectomy
  24. GABAPENTIN [Concomitant]
     Active Substance: GABAPENTIN
     Indication: Pain
     Dosage: RECEIVED AT 05:45 AS MULTIPLE DOSES OF GABAPENTIN IN PRECEDING 24 HOURS; HOME MEDICATION; RECEIVED O
  25. HEPARIN [Concomitant]
     Active Substance: HEPARIN SODIUM
     Indication: Product used for unknown indication
     Dosage: TIMING: 05:46 RECEIVED A DOSE OF HEPARIN IN PRECEDING 24 HOURS; RECEIVED IN THE PRECEDING 48 HOURS I
  26. LANSOPRAZOLE [Concomitant]
     Active Substance: LANSOPRAZOLE
     Indication: Product used for unknown indication
     Dosage: TIMING: 06:05 RECEIVED A DOSE OF LEVOTHYROXINE IN PRECEDING 24 HOURS; HAS USED MULTIPLE MEDICATIONS
  27. LEVOTHYROXINE [Concomitant]
     Active Substance: LEVOTHYROXINE\LEVOTHYROXINE SODIUM
     Indication: Product used for unknown indication
     Dosage: TIMING: 05:47 RECEIVED MULTIPLE DOSES OF KETOROLAC IN PRECEDING 24 HOURS; HOME MEDICATION

REACTIONS (1)
  - Anaphylactic reaction [Recovered/Resolved]
